FAERS Safety Report 6988377-4 (Version None)
Quarter: 2010Q3

REPORT INFORMATION
  Report Type: 
  Country: None (occurrence: None)
  Receive Date: 20100916
  Receipt Date: 20100910
  Transmission Date: 20110219
  Serious: Yes (Other)
  Sender: FDA-Public Use
  Company Number: JP-MERCK-1009USA03079

PATIENT
  Age: 58 Year
  Sex: Female
  Weight: 71 kg

DRUGS (6)
  1. JANUVIA [Suspect]
     Indication: BLOOD GLUCOSE ABNORMAL
     Route: 048
     Dates: start: 20100218, end: 20100815
  2. MEVALOTIN [Suspect]
     Indication: DYSLIPIDAEMIA
     Route: 048
     Dates: start: 20060315, end: 20100513
  3. ASPIRIN [Concomitant]
     Indication: ARTERIOSCLEROSIS
     Route: 048
     Dates: start: 20060315
  4. OMEPRAL [Concomitant]
     Indication: REFLUX OESOPHAGITIS
     Route: 048
     Dates: start: 20071212
  5. URSO 250 [Concomitant]
     Indication: CHRONIC HEPATITIS
     Route: 048
     Dates: start: 20080806
  6. MICARDIS [Concomitant]
     Indication: HYPERTENSION
     Route: 048
     Dates: start: 20091112, end: 20100815

REACTIONS (2)
  - BLOOD CREATINE PHOSPHOKINASE INCREASED [None]
  - MYALGIA [None]
